FAERS Safety Report 22298805 (Version 2)
Quarter: 2023Q2

REPORT INFORMATION
  Report Type: Spontaneous
  Country: US (occurrence: US)
  Receive Date: 20230509
  Receipt Date: 20230606
  Transmission Date: 20230722
  Serious: Yes (Hospitalization, Other)
  Sender: FDA-Public Use
  Company Number: US-PFIZER INC-202300184848

PATIENT
  Age: 44 Year
  Sex: Female
  Weight: 120.2 kg

DRUGS (2)
  1. VYNDAMAX [Suspect]
     Active Substance: TAFAMIDIS
     Indication: Cardiac amyloidosis
     Dosage: 61 MG, 1X/DAY
     Route: 048
     Dates: start: 20230403, end: 20230504
  2. FUROSEMIDE [Concomitant]
     Active Substance: FUROSEMIDE
     Indication: Polyuria
     Dosage: 20 MG
     Dates: start: 20230503

REACTIONS (4)
  - Blood pressure increased [Recovering/Resolving]
  - Dyspnoea [Unknown]
  - Respiratory arrest [Unknown]
  - Orthopnoea [Unknown]

NARRATIVE: CASE EVENT DATE: 20230101
